FAERS Safety Report 20093064 (Version 1)
Quarter: 2021Q4

REPORT INFORMATION
  Report Type: Spontaneous
  Country: UA (occurrence: None)
  Receive Date: 20211120
  Receipt Date: 20211120
  Transmission Date: 20220304
  Serious: Yes (Other)
  Sender: FDA-Public Use
  Company Number: UA-ROCHE-2946815

PATIENT
  Age: 37 Year
  Sex: Male

DRUGS (1)
  1. AVASTIN [Suspect]
     Active Substance: BEVACIZUMAB
     Indication: Intestinal adenocarcinoma
     Dosage: 3 CYCLES OF CHEMOTHERAPY WITH AVASTIN ONCE EVERY 21 DAYS
     Route: 041
     Dates: start: 202009

REACTIONS (4)
  - Drug ineffective [Unknown]
  - Condition aggravated [Unknown]
  - Neoplasm [Unknown]
  - Metastases to lung [Unknown]
